FAERS Safety Report 8200832-8 (Version None)
Quarter: 2012Q1

REPORT INFORMATION
  Report Type: 
  Country: None (occurrence: None)
  Receive Date: 20120306
  Receipt Date: 20120221
  Transmission Date: 20120608
  Serious: Yes (Other)
  Sender: FDA-Public Use
  Company Number: FK201200564

PATIENT
  Sex: Female

DRUGS (6)
  1. TAMOXIFEN CITRATE [Concomitant]
  2. GEMCITABINE [Concomitant]
  3. CARBOPLATIN [Suspect]
     Indication: BREAST CANCER
     Dosage: AREA UNDER THE CURVE 6
  4. DOXORUBICIN HCL [Suspect]
     Indication: BREAST CANCER
     Dosage: 50 MG/M2
  5. CISPLATIN [Suspect]
     Indication: BREAST CANCER
     Dosage: 40 MG/M2
  6. PACLITAXEL [Suspect]
     Indication: BREAST CANCER
     Dosage: 175 MG /M2

REACTIONS (9)
  - THROMBOCYTOPENIA [None]
  - PNEUMONIA [None]
  - MYELODYSPLASTIC SYNDROME [None]
  - METASTASES TO PLEURA [None]
  - LEUKOPENIA [None]
  - METASTASES TO PERITONEUM [None]
  - ANAEMIA [None]
  - MYELOID LEUKAEMIA [None]
  - NECROTISING COLITIS [None]
